FAERS Safety Report 17212893 (Version 1)
Quarter: 2019Q4

REPORT INFORMATION
  Report Type: Spontaneous
  Country: SE (occurrence: SE)
  Receive Date: 20191230
  Receipt Date: 20191230
  Transmission Date: 20200122
  Serious: Yes (Hospitalization)
  Sender: FDA-Public Use
  Company Number: SE-TEVA-2019-SE-1158600

PATIENT
  Age: 68 Year
  Sex: Female

DRUGS (4)
  1. OXASCAND [Suspect]
     Active Substance: OXAZEPAM
     Dosage: 15 ST
     Route: 048
     Dates: start: 20180526, end: 20180526
  2. IMOVANE [Suspect]
     Active Substance: ZOPICLONE
     Dosage: 10 ST ,75 MG
     Route: 048
     Dates: start: 20180526, end: 20180526
  3. CITODON [Suspect]
     Active Substance: ACETAMINOPHEN\CODEINE PHOSPHATE
     Dosage: 6 ST ^500MG/30MG^
     Route: 048
     Dates: start: 20180526, end: 20180526
  4. PROPAVAN [Suspect]
     Active Substance: PROPIOMAZINE
     Dosage: 20 ST
     Route: 048
     Dates: start: 20180526, end: 20180526

REACTIONS (3)
  - Intentional self-injury [Unknown]
  - Intentional overdose [Unknown]
  - Lethargy [Unknown]

NARRATIVE: CASE EVENT DATE: 20180526
